FAERS Safety Report 10331961 (Version 1)
Quarter: 2014Q3

REPORT INFORMATION
  Report Type: Spontaneous
  Country: FR (occurrence: FR)
  Receive Date: 20140722
  Receipt Date: 20140722
  Transmission Date: 20150326
  Serious: Yes (Hospitalization, Other)
  Sender: FDA-Public Use
  Company Number: FR-PFIZER INC-2014200817

PATIENT
  Age: 82 Year
  Sex: Female

DRUGS (4)
  1. ALODONT [Suspect]
     Active Substance: CETYLPYRIDINIUM CHLORIDE\CHLOROBUTANOL\EUGENOL
     Indication: TOOTHACHE
     Dosage: UNK
     Route: 002
     Dates: start: 20140623, end: 20140630
  2. PAROEX [Suspect]
     Active Substance: CHLORHEXIDINE GLUCONATE
     Indication: TOOTHACHE
     Dosage: UNK
     Route: 048
     Dates: start: 20140623, end: 20140630
  3. BIRODOGYL [Suspect]
     Active Substance: METRONIDAZOLE\SPIRAMYCIN
     Indication: TOOTHACHE
     Dosage: UNK
     Route: 048
     Dates: start: 20140623, end: 20140630
  4. LYRICA [Suspect]
     Active Substance: PREGABALIN
     Dosage: 25 MG, 1X/DAY
     Route: 048
     Dates: start: 20140530, end: 20140627

REACTIONS (10)
  - Toothache [Unknown]
  - Rash [Unknown]
  - Inflammation [Unknown]
  - Dyspnoea [Unknown]
  - Abdominal distension [Unknown]
  - Pruritus [Recovering/Resolving]
  - Renal impairment [Unknown]
  - Toxic skin eruption [Unknown]
  - Erythema [Recovering/Resolving]
  - Hepatocellular injury [Unknown]

NARRATIVE: CASE EVENT DATE: 201406
